FAERS Safety Report 10615619 (Version 2)
Quarter: 2018Q1

REPORT INFORMATION
  Report Type: Spontaneous
  Country: NO (occurrence: NO)
  Receive Date: 20141201
  Receipt Date: 20180327
  Transmission Date: 20180508
  Serious: Yes (Hospitalization, Other)
  Sender: FDA-Public Use
  Company Number: NO-CIPLA LTD.-2014NO02259

PATIENT

DRUGS (6)
  1. METHOTREXATE. [Suspect]
     Active Substance: METHOTREXATE
     Dosage: UNK
     Route: 065
     Dates: start: 201211
  2. PEMETREXED. [Suspect]
     Active Substance: PEMETREXED
     Indication: NON-SMALL CELL LUNG CANCER
     Dosage: 800 MG, ON DAYS 1 AND 22 FOR FOUR COURSES
     Route: 065
     Dates: start: 201202, end: 201204
  3. METHOTREXATE. [Suspect]
     Active Substance: METHOTREXATE
     Indication: RHEUMATOID ARTHRITIS
     Dosage: UNK
     Route: 065
  4. CARBOPLATIN. [Suspect]
     Active Substance: CARBOPLATIN
     Indication: NON-SMALL CELL LUNG CANCER METASTATIC
     Dosage: AUC5, DAYS 1 AND 22 FOR FOUR COURSES
     Route: 065
  5. CARBOPLATIN. [Suspect]
     Active Substance: CARBOPLATIN
     Dosage: AUC5, DAYS 1 AND 22 FOR FOUR COURSES
     Route: 065
     Dates: start: 201202, end: 201204
  6. VINORELBINE [Suspect]
     Active Substance: VINORELBINE\VINORELBINE TARTRATE
     Indication: NON-SMALL CELL LUNG CANCER METASTATIC
     Dosage: 55 MG, ON DAYS 1, 8 AND 22, FOR FOUR COURSES
     Route: 065

REACTIONS (7)
  - Adrenocortical carcinoma [Recovered/Resolved]
  - Adverse event [Unknown]
  - Fatigue [Unknown]
  - Leukocytosis [Unknown]
  - Disease progression [Unknown]
  - Anaemia [Unknown]
  - Rheumatoid arthritis [Unknown]
